FAERS Safety Report 4480661-1 (Version None)
Quarter: 2004Q4

REPORT INFORMATION
  Report Type: 
  Country: None (occurrence: None)
  Receive Date: 20041019
  Receipt Date: 20041013
  Transmission Date: 20050328
  Serious: Yes (Death, Hospitalization, Other)
  Sender: FDA-Public Use
  Company Number: TPG2004A00103

PATIENT
  Age: 77 Year
  Sex: Female

DRUGS (6)
  1. ACTOS [Suspect]
     Indication: DIABETES MELLITUS NON-INSULIN-DEPENDENT
     Dosage: 30 MG (30 MG, 1 IN 1 D), PER ORAL
     Route: 048
     Dates: start: 20030728
  2. AMARYL (CLIMEPIRIDE) [Concomitant]
  3. CAPTOHEXAL COMP (CAPOZIDE) [Concomitant]
  4. ASS RATIOPHARM (ACETYLSALICYLIC ACID) [Concomitant]
  5. NORVASC [Concomitant]
  6. CARBIMAZOL HENNING (CARBIMAZOLE) [Concomitant]

REACTIONS (16)
  - APATHY [None]
  - ARTERIAL STENOSIS [None]
  - CARDIAC FAILURE [None]
  - CARDIAC FAILURE ACUTE [None]
  - CEREBRAL HAEMORRHAGE [None]
  - CEREBRAL INFARCTION [None]
  - EMBOLISM [None]
  - HEMIPARESIS [None]
  - MEDICAL DEVICE COMPLICATION [None]
  - MICROANGIOPATHY [None]
  - PNEUMONIA [None]
  - PULMONARY OEDEMA [None]
  - RENAL FAILURE [None]
  - RESPIRATORY FAILURE [None]
  - SEPSIS [None]
  - SOMNOLENCE [None]
